FAERS Safety Report 12553134 (Version 4)
Quarter: 2016Q3

REPORT INFORMATION
  Report Type: Report from Study
  Country: GB (occurrence: GB)
  Receive Date: 20160713
  Receipt Date: 20160927
  Transmission Date: 20161109
  Serious: Yes (Other)
  Sender: FDA-Public Use
  Company Number: GB-JNJFOC-20160703916

PATIENT
  Age: 65 Year
  Sex: Male

DRUGS (1)
  1. STELARA [Suspect]
     Active Substance: USTEKINUMAB
     Indication: PSORIASIS
     Route: 058
     Dates: start: 20140818

REACTIONS (11)
  - Laryngotracheal oedema [Unknown]
  - Lip discolouration [Unknown]
  - Malaise [Unknown]
  - Oral mucosal blistering [Unknown]
  - Fatigue [Unknown]
  - Off label use [Unknown]
  - Injection related reaction [Unknown]
  - Oral infection [Unknown]
  - Oral disorder [Unknown]
  - Dyspnoea exertional [Unknown]
  - Product use issue [Unknown]

NARRATIVE: CASE EVENT DATE: 20140818
